FAERS Safety Report 5472905-4 (Version None)
Quarter: 2007Q4

REPORT INFORMATION
  Report Type: 
  Country: None (occurrence: None)
  Receive Date: 20071001
  Receipt Date: 20070919
  Transmission Date: 20080405
  Serious: Yes (Death, Hospitalization)
  Sender: FDA-Public Use
  Company Number: B0484296A

PATIENT
  Sex: Male
  Weight: 68 kg

DRUGS (8)
  1. TOPOTECAN [Suspect]
     Dosage: 1.5MGM2 CYCLIC
     Route: 048
     Dates: start: 20021115
  2. PACLITAXEL [Suspect]
     Dosage: 110MGM2 CYCLIC
     Route: 042
     Dates: start: 20021118
  3. ETOPOSIDE [Suspect]
     Dosage: 160MGM2 CYCLIC
     Route: 048
     Dates: start: 20021115
  4. NEUPOGEN [Concomitant]
     Route: 058
  5. NEUPOGEN [Concomitant]
  6. ALBUTEROL [Concomitant]
  7. IMODIUM [Concomitant]
  8. SALMETEROL [Concomitant]

REACTIONS (3)
  - CAECITIS [None]
  - FEBRILE NEUTROPENIA [None]
  - PAIN [None]
